FAERS Safety Report 6816556-5 (Version None)
Quarter: 2010Q3

REPORT INFORMATION
  Report Type: 
  Country: None (occurrence: None)
  Receive Date: 20100706
  Receipt Date: 20100701
  Transmission Date: 20110219
  Serious: Yes (Death)
  Sender: FDA-Public Use
  Company Number: PHHY2009CL43194

PATIENT
  Age: 85 Year
  Sex: Male

DRUGS (1)
  1. TAREG D [Suspect]
     Dosage: 160/12.5 MG, UNK

REACTIONS (1)
  - DEATH [None]
